FAERS Safety Report 8950590 (Version 1)
Quarter: 2012Q4

REPORT INFORMATION
  Report Type: Spontaneous
  Country: US (occurrence: None)
  Receive Date: 20121204
  Receipt Date: 20121204
  Transmission Date: 20130627
  Serious: Yes (Other)
  Sender: FDA-Public Use
  Company Number: None

PATIENT
  Age: 80 Year
  Sex: Female
  Weight: 79.38 kg

DRUGS (26)
  1. DIVALPROEX [Suspect]
     Indication: BIPOLAR DISORDER
     Dosage: Since prior to 2/2008
  2. ASPIRIN [Concomitant]
  3. BUTRANS [Concomitant]
  4. CALCITONIN [Concomitant]
  5. CALCITRATE + VIT D [Concomitant]
  6. CERTA-VITE SR W/ MINERALS [Concomitant]
  7. CLONAZEPAM [Concomitant]
  8. CYMBALTA [Concomitant]
  9. DESONIDE [Concomitant]
  10. FLUOCINONIDE [Concomitant]
  11. FUROSEMIDE [Concomitant]
  12. LEVOTHYROXINE [Concomitant]
  13. LUBRICANT EYE DROPS GNP [Concomitant]
  14. TYLENOL [Concomitant]
  15. MELATONIN [Concomitant]
  16. METOCLOPRAMIDE [Concomitant]
  17. MAALOX [Concomitant]
  18. MILK OF MAGNESIA [Concomitant]
  19. NATURAL FIBER LAX [Concomitant]
  20. NYSTOP [Concomitant]
  21. OMEPRAZOLE [Concomitant]
  22. PRESERVISION LUTEIN [Concomitant]
  23. PROPRANOLOL [Concomitant]
  24. SENNA PLUS [Concomitant]
  25. SEROQUEL XR [Concomitant]
  26. SORBITOL [Concomitant]

REACTIONS (8)
  - Rash pruritic [None]
  - Depression [None]
  - Scab [None]
  - Excoriation [None]
  - Nodule [None]
  - Rash papular [None]
  - Cutaneous lupus erythematosus [None]
  - Eczema [None]
